FAERS Safety Report 9115040 (Version 1)
Quarter: 2013Q1

REPORT INFORMATION
  Report Type: Spontaneous
  Country: US (occurrence: US)
  Receive Date: 20130208
  Receipt Date: 20130208
  Transmission Date: 20140127
  Serious: Yes (Other)
  Sender: FDA-Public Use
  Company Number: US-BAYER-2013-016763

PATIENT
  Age: 71 Year
  Sex: Male

DRUGS (8)
  1. XARELTO [Suspect]
     Indication: CEREBROVASCULAR ACCIDENT PROPHYLAXIS
     Dosage: 20 MG, QD
     Route: 048
  2. XARELTO [Interacting]
     Indication: ATRIAL FIBRILLATION
  3. ACETYLSALICYLIC ACID({=100 MG) [Interacting]
     Indication: PRODUCT USED FOR UNKNOWN INDICATION
     Dosage: 81 MG, UNK
     Route: 065
  4. VITAMIN C [Suspect]
     Indication: NASOPHARYNGITIS
     Dosage: 1000 MG, UNK
     Route: 065
  5. INSULIN [Concomitant]
     Indication: DIABETES MELLITUS
     Route: 065
  6. GLUCOPHAGE [Concomitant]
     Indication: DIABETES MELLITUS
     Route: 065
  7. LIPITOR [Concomitant]
     Route: 065
  8. SOTALOL [Concomitant]
     Indication: ATRIAL FIBRILLATION
     Dosage: 120 MG, BID
     Route: 065

REACTIONS (3)
  - Haematuria [Not Recovered/Not Resolved]
  - Nasopharyngitis [Not Recovered/Not Resolved]
  - Nasopharyngitis [None]
